FAERS Safety Report 10590067 (Version 1)
Quarter: 2014Q4

REPORT INFORMATION
  Report Type: Spontaneous
  Country: US (occurrence: None)
  Receive Date: 20141117
  Receipt Date: 20141117
  Transmission Date: 20150529
  Serious: Yes (Other)
  Sender: FDA-Public Use
  Company Number: None

PATIENT
  Age: 14 Year
  Sex: Female

DRUGS (1)
  1. CONCERTA [Suspect]
     Active Substance: METHYLPHENIDATE HYDROCHLORIDE
     Indication: ATTENTION DEFICIT/HYPERACTIVITY DISORDER
     Dosage: ONE BY MOUTH, QD, ORAL
     Route: 048
     Dates: start: 20140501, end: 20140506

REACTIONS (6)
  - Dyspnoea [None]
  - Product substitution issue [None]
  - Anxiety [None]
  - Product quality issue [None]
  - Tachycardia [None]
  - Orthostatic intolerance [None]
